FAERS Safety Report 4967155-1 (Version None)
Quarter: 2006Q2

REPORT INFORMATION
  Report Type: 
  Country: None (occurrence: None)
  Receive Date: 20060403
  Receipt Date: 20060320
  Transmission Date: 20061013
  Serious: Yes (Hospitalization, Congenital Anomaly, Other)
  Sender: FDA-Public Use
  Company Number: 2006034259

PATIENT
  Sex: Male
  Weight: 1.8144 kg

DRUGS (3)
  1. ZYRTEC [Suspect]
     Indication: ILL-DEFINED DISORDER
     Dosage: 10 MG (1 IN 1 D)
  2. PROCARDIA [Suspect]
     Indication: ILL-DEFINED DISORDER
  3. PRENATAL VITAMINS (ASCORBIC ACID, BIOTIN, MINERALS NOS, NICOTINIC ACID [Suspect]

REACTIONS (19)
  - BLOOD BILIRUBIN ABNORMAL [None]
  - BREECH PRESENTATION [None]
  - CAESAREAN SECTION [None]
  - CONGENITAL ANOMALY [None]
  - DERMATITIS DIAPER [None]
  - DRUG EXPOSURE DURING PREGNANCY [None]
  - FEEDING DISORDER NEONATAL [None]
  - FOETAL GROWTH RETARDATION [None]
  - GENE MUTATION [None]
  - HAEMORRHAGE INTRACRANIAL [None]
  - HEARING IMPAIRED [None]
  - HEART RATE DECREASED [None]
  - HYPOGLYCAEMIA NEONATAL [None]
  - HYPOVENTILATION NEONATAL [None]
  - JAUNDICE NEONATAL [None]
  - OLIGOHYDRAMNIOS [None]
  - OXYGEN SATURATION DECREASED [None]
  - PREMATURE BABY [None]
  - SYNDACTYLY [None]
